FAERS Safety Report 9603516 (Version 2)
Quarter: 2013Q4

REPORT INFORMATION
  Report Type: Spontaneous
  Country: JP (occurrence: JP)
  Receive Date: 20131007
  Receipt Date: 20131127
  Transmission Date: 20140711
  Serious: Yes (Hospitalization)
  Sender: FDA-Public Use
  Company Number: JP-ALLERGAN-1315624US

PATIENT
  Age: 11 Year
  Sex: Male

DRUGS (7)
  1. BOTOX [Suspect]
     Indication: MUSCLE SPASMS
     Dosage: UNK
     Route: 030
     Dates: start: 20130513, end: 20130513
  2. BOTOX [Suspect]
     Dosage: 100 UNITS, SINGLE
     Route: 030
     Dates: start: 20130828, end: 20130828
  3. BOTOX [Suspect]
     Dosage: 100 UNITS, SINGLE
     Route: 030
     Dates: start: 20130828, end: 20130828
  4. BOTOX [Suspect]
     Dosage: 50 UNITS, SINGLE
     Route: 030
     Dates: start: 20130828, end: 20130828
  5. PHENOBAL [Concomitant]
     Route: 048
  6. DIAMOX [Concomitant]
     Route: 048
  7. MYSTAN [Concomitant]
     Route: 048

REACTIONS (1)
  - Appendicitis [Recovered/Resolved]
